FAERS Safety Report 5076234-2 (Version None)
Quarter: 2006Q3

REPORT INFORMATION
  Report Type: 
  Country: None (occurrence: None)
  Receive Date: 20060804
  Receipt Date: 20060724
  Transmission Date: 20061208
  Serious: Yes (Hospitalization, Other)
  Sender: FDA-Public Use
  Company Number: 2006087283

PATIENT
  Age: 17 Year
  Sex: Female
  Weight: 50 kg

DRUGS (5)
  1. SULFASALAZINE [Suspect]
     Indication: CROHN'S DISEASE
     Dosage: 2 GRAM (1 IN 1 D),
     Dates: start: 20060601, end: 20060706
  2. ENBREL [Concomitant]
  3. PREDNISOLONE [Suspect]
  4. FOLIC ACID [Concomitant]
  5. DEXAMETHASONE [Concomitant]

REACTIONS (5)
  - FATIGUE [None]
  - LEUKOPENIA [None]
  - NEUTROPENIA [None]
  - PYREXIA [None]
  - STOMATITIS [None]
